FAERS Safety Report 5682768-X (Version None)
Quarter: 2008Q1

REPORT INFORMATION
  Report Type: 
  Country: None (occurrence: None)
  Receive Date: 20080327
  Receipt Date: 20080318
  Transmission Date: 20080703
  Serious: Yes (Other)
  Sender: FDA-Public Use
  Company Number: GB-ASTRAZENECA-2008GB00531

PATIENT
  Age: 572 Month
  Sex: Female

DRUGS (5)
  1. NOLVADEX [Suspect]
     Indication: BREAST CANCER
     Route: 048
     Dates: start: 20070711
  2. HALOPERIDOL [Concomitant]
  3. DEXAMETHASONE TAB [Concomitant]
  4. LANSOPRAZOLE [Concomitant]
  5. FILGRASTIM [Concomitant]

REACTIONS (2)
  - CONGENITAL CYSTIC KIDNEY DISEASE [None]
  - HEPATOMEGALY [None]
